FAERS Safety Report 11254564 (Version 1)
Quarter: 2015Q3

REPORT INFORMATION
  Report Type: Spontaneous
  Country: CA (occurrence: CA)
  Receive Date: 20150709
  Receipt Date: 20150709
  Transmission Date: 20151125
  Serious: Yes (Other)
  Sender: FDA-Public Use
  Company Number: CA-JNJFOC-20150702230

PATIENT
  Age: 72 Year
  Sex: Female
  Weight: 52.62 kg

DRUGS (4)
  1. TYLENOL ARTHRITIS PAIN [Suspect]
     Active Substance: ACETAMINOPHEN
     Indication: ANALGESIC THERAPY
     Dosage: ONE PILL, AS NEEDED
     Route: 048
  2. TYLENOL REGULAR STRENGTH [Concomitant]
     Active Substance: ACETAMINOPHEN
     Indication: PRODUCT USED FOR UNKNOWN INDICATION
     Route: 065
  3. TYLENOL ARTHRITIS PAIN [Suspect]
     Active Substance: ACETAMINOPHEN
     Route: 048
  4. ELTROXIN [Concomitant]
     Active Substance: LEVOTHYROXINE
     Indication: THYROID DISORDER
     Dosage: 1.5 DAILY, MORE THAN 30 YEARS
     Route: 065

REACTIONS (5)
  - Vasodilatation [Unknown]
  - Haematochezia [Unknown]
  - Pain in extremity [Unknown]
  - Pain [Unknown]
  - Abdominal pain upper [Unknown]
